FAERS Safety Report 4851187-8 (Version None)
Quarter: 2005Q4

REPORT INFORMATION
  Report Type: 
  Country: None (occurrence: None)
  Receive Date: 20051208
  Receipt Date: 20051130
  Transmission Date: 20060501
  Serious: Yes (Other)
  Sender: FDA-Public Use
  Company Number: 2005162735

PATIENT
  Sex: Female

DRUGS (1)
  1. UNISOM [Suspect]
     Dosage: 1 BOTTLE ONCE, ORAL
     Route: 048
     Dates: start: 20051129, end: 20051129

REACTIONS (2)
  - OVERDOSE [None]
  - TREMOR [None]
